FAERS Safety Report 4679452-8 (Version None)
Quarter: 2005Q2

REPORT INFORMATION
  Report Type: 
  Country: None (occurrence: None)
  Receive Date: 20050602
  Receipt Date: 20050527
  Transmission Date: 20051028
  Serious: Yes (Life-Threatening, Hospitalization, Disabling)
  Sender: FDA-Public Use
  Company Number: US-MERCK-0505USA03295

PATIENT
  Age: 53 Year
  Sex: Female

DRUGS (4)
  1. VIOXX [Suspect]
     Indication: ARTHRITIS
     Route: 048
     Dates: start: 20000101, end: 20040930
  2. NEURONTIN [Concomitant]
     Route: 065
  3. AMITRIPTYLIN [Concomitant]
     Route: 065
  4. TOPAMAX [Concomitant]
     Route: 065

REACTIONS (3)
  - CHEST PAIN [None]
  - DIFFICULTY IN WALKING [None]
  - MYOCARDIAL INFARCTION [None]
